FAERS Safety Report 23526247 (Version 1)
Quarter: 2024Q1

REPORT INFORMATION
  Report Type: Spontaneous
  Country: US (occurrence: None)
  Receive Date: 20240215
  Receipt Date: 20240215
  Transmission Date: 20240409
  Serious: Yes (Other)
  Sender: FDA-Public Use
  Company Number: 2024A034109

PATIENT
  Sex: Female

DRUGS (1)
  1. CALQUENCE [Suspect]
     Active Substance: ACALABRUTINIB
     Route: 048

REACTIONS (11)
  - Neoplasm malignant [Unknown]
  - Alopecia [Unknown]
  - Hair texture abnormal [Unknown]
  - Protein total decreased [Unknown]
  - Nail disorder [Unknown]
  - Chest discomfort [Unknown]
  - Immune system disorder [Unknown]
  - Anxiety [Unknown]
  - Hunger [Unknown]
  - Memory impairment [Unknown]
  - Drug effect less than expected [Unknown]
